FAERS Safety Report 6961407-1 (Version None)
Quarter: 2010Q3

REPORT INFORMATION
  Report Type: 
  Country: None (occurrence: None)
  Receive Date: 20100901
  Receipt Date: 20100823
  Transmission Date: 20110219
  Serious: Yes (Other)
  Sender: FDA-Public Use
  Company Number: PHHY2010US55692

PATIENT
  Sex: Female

DRUGS (2)
  1. ESTRADERM [Suspect]
     Dosage: 0.05 MG, ONCE EVERY WEEK
     Route: 062
  2. PENTASA [Concomitant]
     Dosage: 500 MG, TID

REACTIONS (1)
  - DEMENTIA ALZHEIMER'S TYPE [None]
